FAERS Safety Report 9851137 (Version 1)
Quarter: 2014Q1

REPORT INFORMATION
  Report Type: Spontaneous
  Country: GB (occurrence: GB)
  Receive Date: 20140128
  Receipt Date: 20140128
  Transmission Date: 20141002
  Serious: Yes (Hospitalization, Other)
  Sender: FDA-Public Use
  Company Number: GB-WATSON-2014-00727

PATIENT
  Sex: Female

DRUGS (4)
  1. CITALOPRAM (UNKNOWN) [Suspect]
     Indication: PRODUCT USED FOR UNKNOWN INDICATION
     Dosage: 40 MG, DAILY
     Route: 048
  2. CITALOPRAM (UNKNOWN) [Suspect]
     Dosage: 30 MG, DAILY
     Route: 048
  3. CITALOPRAM (UNKNOWN) [Suspect]
     Dosage: 20 MG, DAILY
     Route: 048
  4. CITALOPRAM (UNKNOWN) [Suspect]
     Dosage: 20 MG, DAILY
     Route: 048
     Dates: start: 201302

REACTIONS (2)
  - Intracranial aneurysm [Unknown]
  - Hypoaesthesia [Recovered/Resolved]
